FAERS Safety Report 17820273 (Version 4)
Quarter: 2020Q2

REPORT INFORMATION
  Report Type: Spontaneous
  Country: US (occurrence: US)
  Receive Date: 20200525
  Receipt Date: 20200614
  Transmission Date: 20200714
  Serious: No
  Sender: FDA-Public Use
  Company Number: US-AMGEN-USASP2020081482

PATIENT
  Age: 73 Year
  Sex: Female

DRUGS (2)
  1. NEULASTA [Suspect]
     Active Substance: PEGFILGRASTIM
     Indication: BREAST CANCER FEMALE
  2. NEULASTA [Suspect]
     Active Substance: PEGFILGRASTIM
     Indication: ALCOHOLIC PSYCHOSIS
     Dosage: 6 MILLIGRAM, Q2WK
     Route: 058

REACTIONS (1)
  - Device issue [Unknown]

NARRATIVE: CASE EVENT DATE: 202005
